FAERS Safety Report 4784359-1 (Version None)
Quarter: 2005Q3

REPORT INFORMATION
  Report Type: 
  Country: None (occurrence: None)
  Receive Date: 20050930
  Receipt Date: 20050923
  Transmission Date: 20060218
  Serious: Yes (Hospitalization, Other)
  Sender: FDA-Public Use
  Company Number: 2005PK01770

PATIENT
  Age: 806 Month
  Sex: Female
  Weight: 60 kg

DRUGS (6)
  1. NOLVADEX [Suspect]
     Indication: BREAST CANCER
     Route: 048
     Dates: start: 20030205, end: 20050201
  2. ARIMIDEX [Suspect]
     Indication: BREAST CANCER
     Route: 048
     Dates: start: 20050219
  3. CO-MEPRIL [Concomitant]
     Indication: HYPERTENSION
     Route: 048
  4. THROMBO ASS [Concomitant]
     Indication: CAROTID ARTERY STENOSIS
     Route: 048
  5. GLADEM [Concomitant]
     Indication: DEPRESSION
     Route: 048
  6. INDERAL [Concomitant]
     Indication: HYPERTENSION
     Route: 048

REACTIONS (1)
  - OVARIAN ADENOMA [None]
